FAERS Safety Report 18650546 (Version 1)
Quarter: 2020Q4

REPORT INFORMATION
  Report Type: Spontaneous
  Country: JP (occurrence: JP)
  Receive Date: 20201222
  Receipt Date: 20201222
  Transmission Date: 20210114
  Serious: Yes (Other)
  Sender: FDA-Public Use
  Company Number: JP-ALLERGAN-2048187US

PATIENT
  Sex: Male

DRUGS (4)
  1. ALPHAGAN P [Suspect]
     Active Substance: BRIMONIDINE TARTRATE
     Indication: GLAUCOMA
     Dosage: UNK, BID
     Route: 047
     Dates: end: 20201113
  2. XALATAN [Concomitant]
     Active Substance: LATANOPROST
     Dosage: UNK
  3. METHYCOBAL [Concomitant]
     Active Substance: METHYLCOBALAMIN
     Dosage: UNK
  4. TEARBALANCE [Suspect]
     Active Substance: HYALURONATE SODIUM
     Indication: DRY EYE
     Dosage: 1 GTT
     Route: 047

REACTIONS (3)
  - Corneal opacity [Recovering/Resolving]
  - Visual acuity reduced [Unknown]
  - Inappropriate schedule of product administration [Unknown]

NARRATIVE: CASE EVENT DATE: 20201113
